FAERS Safety Report 25980932 (Version 1)
Quarter: 2025Q4

REPORT INFORMATION
  Report Type: Report from Study
  Country: US (occurrence: US)
  Receive Date: 20251030
  Receipt Date: 20251030
  Transmission Date: 20260118
  Serious: Yes (Other)
  Sender: AMGEN
  Company Number: US-AMGEN-USASL2025095483

PATIENT
  Age: 66 Year
  Sex: Female

DRUGS (2)
  1. TEPEZZA [Suspect]
     Active Substance: TEPROTUMUMAB-TRBW
     Indication: Parophthalmia
     Dosage: UNK UNK, Q3WK X 8
     Route: 040
     Dates: start: 20250303
  2. TEPEZZA [Suspect]
     Active Substance: TEPROTUMUMAB-TRBW
     Dosage: UNK UNK, Q3WK (THIRD INFUSION)
     Route: 040
     Dates: start: 2025, end: 20250505

REACTIONS (3)
  - Deafness unilateral [Unknown]
  - Irritable bowel syndrome [Unknown]
  - Off label use [Unknown]

NARRATIVE: CASE EVENT DATE: 20250303
